FAERS Safety Report 16975650 (Version 3)
Quarter: 2019Q4

REPORT INFORMATION
  Report Type: Report from Study
  Country: JP (occurrence: JP)
  Receive Date: 20191030
  Receipt Date: 20191227
  Transmission Date: 20200122
  Serious: Yes (Hospitalization)
  Sender: FDA-Public Use
  Company Number: JP-EISAI MEDICAL RESEARCH-EC-2019-064239

PATIENT
  Age: 20 Year
  Sex: Female

DRUGS (6)
  1. FYCOMPA [Suspect]
     Active Substance: PERAMPANEL
     Route: 048
     Dates: start: 20180709, end: 20180806
  2. FYCOMPA [Suspect]
     Active Substance: PERAMPANEL
     Indication: EPILEPSY
     Route: 048
     Dates: start: 20180127, end: 20180227
  3. FYCOMPA [Suspect]
     Active Substance: PERAMPANEL
     Route: 048
     Dates: start: 20180228, end: 20180708
  4. INOVELON [Concomitant]
     Active Substance: RUFINAMIDE
     Route: 048
  5. EPILEO PETIT MAL [Concomitant]
  6. DEPAKENE-R [Concomitant]
     Active Substance: VALPROATE SODIUM

REACTIONS (2)
  - Mental disorder [Not Recovered/Not Resolved]
  - Aggression [Unknown]

NARRATIVE: CASE EVENT DATE: 20180519
